FAERS Safety Report 6089142-5 (Version None)
Quarter: 2009Q1

REPORT INFORMATION
  Report Type: 
  Country: None (occurrence: None)
  Receive Date: 20090220
  Receipt Date: 20090220
  Transmission Date: 20090719
  Serious: Yes (Death)
  Sender: FDA-Public Use
  Company Number: None

PATIENT
  Age: 21 Year
  Sex: Female
  Weight: 60.782 kg

DRUGS (1)
  1. METHADONE HCL [Suspect]
     Indication: DRUG ABUSER
     Dosage: 80MGSD ONCE DAILY
     Dates: start: 20080105, end: 20080422

REACTIONS (2)
  - DRUG TOXICITY [None]
  - OVERDOSE [None]
